FAERS Safety Report 5487316-5 (Version None)
Quarter: 2007Q4

REPORT INFORMATION
  Report Type: 
  Country: None (occurrence: None)
  Receive Date: 20071016
  Receipt Date: 20071008
  Transmission Date: 20080405
  Serious: Yes (Hospitalization)
  Sender: FDA-Public Use
  Company Number: FR-MERCK-0710FRA00026

PATIENT
  Age: 74 Year
  Sex: Female

DRUGS (6)
  1. EMEND [Suspect]
     Indication: PROPHYLAXIS OF NAUSEA AND VOMITING
     Route: 048
     Dates: start: 20070806
  2. CARBOPLATIN [Suspect]
     Indication: OVARIAN CANCER
     Route: 042
     Dates: start: 20070806, end: 20070806
  3. PACLITAXEL [Suspect]
     Indication: OVARIAN CANCER
     Route: 042
     Dates: start: 20070806, end: 20070806
  4. DEXTROSE AND POTASSIUM CHLORIDE [Suspect]
     Indication: PREMEDICATION
     Route: 042
     Dates: start: 20070806, end: 20070806
  5. DEXCHLORPHENIRAMINE MALEATE [Suspect]
     Indication: PREMEDICATION
     Route: 042
     Dates: start: 20070806, end: 20070806
  6. METHYLPREDNISOLONE SODIUM SUCCINATE [Suspect]
     Indication: PREMEDICATION
     Route: 042
     Dates: start: 20070806, end: 20070806

REACTIONS (5)
  - DIARRHOEA [None]
  - ERYTHEMA [None]
  - HYPERSENSITIVITY [None]
  - MALAISE [None]
  - PRURITUS [None]
